FAERS Safety Report 5953306-9 (Version None)
Quarter: 2008Q4

REPORT INFORMATION
  Report Type: 
  Country: None (occurrence: None)
  Receive Date: 20081114
  Receipt Date: 20081110
  Transmission Date: 20090506
  Serious: Yes (Life-Threatening)
  Sender: FDA-Public Use
  Company Number: PHHY2008TR27690

PATIENT
  Sex: Female

DRUGS (1)
  1. EXJADE [Suspect]

REACTIONS (2)
  - ENCEPHALOPATHY [None]
  - TETANUS [None]
